FAERS Safety Report 11683887 (Version 1)
Quarter: 2015Q4

REPORT INFORMATION
  Report Type: Spontaneous
  Country: US (occurrence: US)
  Receive Date: 20151029
  Receipt Date: 20151029
  Transmission Date: 20160304
  Serious: No
  Sender: FDA-Public Use
  Company Number: US-TARO-2015TAR00754

PATIENT
  Sex: Female
  Weight: 68.27 kg

DRUGS (1)
  1. TRIAMCINOLONE UNSPECIFIED [Suspect]
     Active Substance: TRIAMCINOLONE

REACTIONS (1)
  - Drug hypersensitivity [Unknown]
